FAERS Safety Report 23490299 (Version 1)
Quarter: 2024Q1

REPORT INFORMATION
  Report Type: Spontaneous
  Country: US (occurrence: None)
  Receive Date: 20240206
  Receipt Date: 20240206
  Transmission Date: 20240410
  Serious: No
  Sender: FDA-Public Use
  Company Number: US-ROCHE-3409842

PATIENT
  Age: 48 Year
  Sex: Female
  Weight: 71.214 kg

DRUGS (19)
  1. XOLAIR [Suspect]
     Active Substance: OMALIZUMAB
     Indication: Idiopathic urticaria
     Dosage: STRENGTH: 150MG/ML
     Route: 058
     Dates: start: 20201210, end: 20230815
  2. XOLAIR [Suspect]
     Active Substance: OMALIZUMAB
  3. XOLAIR [Suspect]
     Active Substance: OMALIZUMAB
  4. XOLAIR [Suspect]
     Active Substance: OMALIZUMAB
     Indication: Asthma
  5. XOLAIR [Suspect]
     Active Substance: OMALIZUMAB
  6. XOLAIR [Suspect]
     Active Substance: OMALIZUMAB
  7. XOLAIR [Suspect]
     Active Substance: OMALIZUMAB
     Indication: Rhinitis allergic
  8. XOLAIR [Suspect]
     Active Substance: OMALIZUMAB
  9. XOLAIR [Suspect]
     Active Substance: OMALIZUMAB
  10. ZYRTEC [Concomitant]
     Active Substance: CETIRIZINE HYDROCHLORIDE
  11. PREDNISONE [Concomitant]
     Active Substance: PREDNISONE
  12. EPINEPHRINE [Concomitant]
     Active Substance: EPINEPHRINE
  13. CLARITIN [Concomitant]
     Active Substance: LORATADINE
  14. SINGULAIR [Concomitant]
     Active Substance: MONTELUKAST SODIUM
  15. ALBUTEROL [Concomitant]
     Active Substance: ALBUTEROL
     Dosage: 0.083% INHAL SOLN 2.5 MG (3 M1 (0.083 %) SIG: TIBALE 1 VIAL. FOUR TIMES A DAY
  16. FLONASE [Concomitant]
     Active Substance: FLUTICASONE PROPIONATE
     Dosage: 0.05% NASAL SPRAY 50 MEG/ACTUATION - SIG: 2 SPRAYS PER NOSTRIL DAILY
  17. PEPCID [Concomitant]
     Active Substance: FAMOTIDINE
     Dosage: 20 MG TABLET SIG:1 PO BID
     Route: 048
  18. XOPENEX [Concomitant]
     Active Substance: LEVALBUTEROL HYDROCHLORIDE
     Dosage: HFA 45 MEG INHALER MEG/ACTUATION SIG: 2 PUFFS EVERY 4-6 HOURS AS NEEDED
  19. ASTELIN [Concomitant]
     Active Substance: AZELASTINE HYDROCHLORIDE
     Dosage: 137 MCG NASAL SPRAY SIG: 2 SPRAYS PER NOSTRIL TWICE DAILY

REACTIONS (4)
  - Hypersensitivity [Unknown]
  - Urticaria [Unknown]
  - Wheezing [Unknown]
  - Bronchospasm [Unknown]

NARRATIVE: CASE EVENT DATE: 20230815
